FAERS Safety Report 15355091 (Version 2)
Quarter: 2018Q3

REPORT INFORMATION
  Report Type: Spontaneous
  Country: US (occurrence: US)
  Receive Date: 20180906
  Receipt Date: 20180926
  Transmission Date: 20181010
  Serious: Yes (Hospitalization)
  Sender: FDA-Public Use
  Company Number: US-PFIZER INC-2018356050

PATIENT
  Age: 78 Year
  Sex: Female
  Weight: 51.89 kg

DRUGS (1)
  1. IBRANCE [Suspect]
     Active Substance: PALBOCICLIB
     Dosage: UNK

REACTIONS (6)
  - Clostridium difficile colitis [Recovered/Resolved]
  - Flushing [Unknown]
  - Dizziness postural [Unknown]
  - Chills [Unknown]
  - Febrile neutropenia [Recovered/Resolved]
  - White blood cell count decreased [Unknown]

NARRATIVE: CASE EVENT DATE: 201808
